FAERS Safety Report 9726032 (Version 2)
Quarter: 2014Q1

REPORT INFORMATION
  Report Type: Spontaneous
  Country: US (occurrence: US)
  Receive Date: 20131203
  Receipt Date: 20140113
  Transmission Date: 20141002
  Serious: No
  Sender: FDA-Public Use
  Company Number: US-009507513-1310USA003561

PATIENT
  Age: 35 Year
  Sex: Female
  Weight: 80.73 kg

DRUGS (1)
  1. IMPLANON [Suspect]
     Indication: CONTRACEPTION
     Dosage: 1 DF/3 YEARS
     Route: 059
     Dates: start: 20120515

REACTIONS (6)
  - Injection site bruising [Unknown]
  - Injection site swelling [Unknown]
  - Injection site scar [Unknown]
  - Injection site pain [Unknown]
  - Injection site discomfort [Unknown]
  - Injection site bruising [Recovering/Resolving]
